FAERS Safety Report 18581936 (Version 2)
Quarter: 2020Q4

REPORT INFORMATION
  Report Type: Spontaneous
  Country: US (occurrence: US)
  Receive Date: 20201204
  Receipt Date: 20201218
  Transmission Date: 20210114
  Serious: No
  Sender: FDA-Public Use
  Company Number: US-PFIZER INC-2020480608

PATIENT
  Age: 54 Year
  Sex: Female

DRUGS (1)
  1. IBRANCE [Suspect]
     Active Substance: PALBOCICLIB
     Indication: BREAST CANCER FEMALE
     Dosage: 125 MG, CYCLIC (DAILY FOR 21 CONSECUTIVE DAYS THEN STOP FOR 7 CONSECUTIVE DAYS/AVOID GRAPEFRUIT PROD
     Route: 048
     Dates: start: 202011, end: 2020

REACTIONS (3)
  - White blood cell count decreased [Unknown]
  - Abdominal pain [Unknown]
  - Influenza [Recovering/Resolving]

NARRATIVE: CASE EVENT DATE: 2020
